FAERS Safety Report 5576050-9 (Version None)
Quarter: 2007Q4

REPORT INFORMATION
  Report Type: 
  Country: None (occurrence: None)
  Receive Date: 20071228
  Receipt Date: 20071220
  Transmission Date: 20080405
  Serious: Yes (Other)
  Sender: FDA-Public Use
  Company Number: BR-JNJFOC-20071205797

PATIENT
  Age: 13 Year
  Sex: Female
  Weight: 55 kg

DRUGS (1)
  1. ACETAMINOPHEN W/ CODEINE [Suspect]
     Indication: SUICIDE ATTEMPT
     Dosage: ACETAMINOPHEN 500MG/CODEINE PHOSPHATE 7.5MG
     Route: 048

REACTIONS (3)
  - HYPERHIDROSIS [None]
  - MALAISE [None]
  - VOMITING [None]
